FAERS Safety Report 11892444 (Version 1)
Quarter: 2016Q1

REPORT INFORMATION
  Report Type: Spontaneous
  Country: US (occurrence: US)
  Receive Date: 20160106
  Receipt Date: 20160106
  Transmission Date: 20160526
  Serious: Yes (Hospitalization)
  Sender: FDA-Public Use
  Company Number: PHEH2015US027593

PATIENT
  Sex: Female
  Weight: 88.9 kg

DRUGS (9)
  1. SEROQUEL [Suspect]
     Active Substance: QUETIAPINE FUMARATE
     Indication: DEPRESSION
     Dosage: 200 MG, QD (AT NIGHT)
     Route: 065
     Dates: start: 2004
  2. SEROQUEL [Suspect]
     Active Substance: QUETIAPINE FUMARATE
     Dosage: 200 MG, QD (AT NIGHT)
     Route: 065
     Dates: start: 201502
  3. METOPROLOL. [Concomitant]
     Active Substance: METOPROLOL
     Indication: BLOOD PRESSURE MEASUREMENT
     Dosage: 25 MG, BID
     Route: 065
  4. XANAX [Suspect]
     Active Substance: ALPRAZOLAM
     Indication: ANXIETY
     Dosage: 0.5 MG, BID (ONE IN THE MORNING AND EVENING, EXTRA ONE NEEDED FOR AN ANXIETY ATTACK DURING THE DAY)
     Route: 065
     Dates: end: 201502
  5. ATIVAN [Concomitant]
     Active Substance: LORAZEPAM
     Indication: PRODUCT USED FOR UNKNOWN INDICATION
     Route: 065
  6. TEGRETOL [Suspect]
     Active Substance: CARBAMAZEPINE
     Indication: NEUROPATHY PERIPHERAL
     Dosage: 400 MG, TID
     Route: 065
     Dates: end: 201502
  7. NEURONTIN [Suspect]
     Active Substance: GABAPENTIN
     Indication: NEUROPATHY PERIPHERAL
     Dosage: UNK
     Route: 065
     Dates: start: 201502, end: 201510
  8. EFFEXOR [Suspect]
     Active Substance: VENLAFAXINE HYDROCHLORIDE
     Indication: DEPRESSION
     Dosage: 150 MG, QD (ONCE A  DAY AT NIGHT)
     Route: 065
     Dates: start: 2004
  9. LYRICA [Concomitant]
     Active Substance: PREGABALIN
     Indication: NEUROPATHY PERIPHERAL
     Dosage: 300 MG, BID (ONE IN MORNING AND ONE AT NIGHT)
     Route: 065
     Dates: start: 201510

REACTIONS (2)
  - Toxicity to various agents [Recovered/Resolved]
  - Product use issue [Unknown]
